FAERS Safety Report 9849925 (Version 1)
Quarter: 2014Q1

REPORT INFORMATION
  Report Type: Spontaneous
  Country: US (occurrence: US)
  Receive Date: 20140128
  Receipt Date: 20140128
  Transmission Date: 20141002
  Serious: Yes (Other)
  Sender: FDA-Public Use
  Company Number: US-FRI-1000053049

PATIENT
  Age: 58 Year
  Sex: Female

DRUGS (9)
  1. LINZESS [Suspect]
     Indication: IRRITABLE BOWEL SYNDROME
     Dosage: 290MCG
     Route: 048
     Dates: start: 201311, end: 201311
  2. LINZESS [Suspect]
     Dosage: 145MCG
     Route: 048
     Dates: start: 201311, end: 20131221
  3. LINZESS [Suspect]
     Indication: IRRITABLE BOWEL SYNDROME
     Dosage: 290MCG
     Route: 048
     Dates: start: 20131222, end: 20140112
  4. LINZESS [Suspect]
     Dosage: 145MCG
     Route: 048
     Dates: start: 20140113, end: 20140119
  5. LINZESS [Suspect]
     Indication: IRRITABLE BOWEL SYNDROME
     Dosage: 290MCG
     Route: 048
     Dates: start: 20140120, end: 20140120
  6. LINZESS [Suspect]
     Dosage: 145MCG
     Route: 048
     Dates: start: 20140122
  7. TOPROL [Concomitant]
     Indication: HYPERTENSION
     Dosage: 50MG
  8. ALTACE [Concomitant]
     Indication: HYPERTENSION
     Dosage: 15MG
  9. PROTONIX [Concomitant]
     Indication: GASTROOESOPHAGEAL REFLUX DISEASE
     Dosage: 40MG

REACTIONS (4)
  - Hypertension [Not Recovered/Not Resolved]
  - Headache [Not Recovered/Not Resolved]
  - Diarrhoea [Recovered/Resolved]
  - Asthenia [Recovered/Resolved]
